FAERS Safety Report 8169547-9 (Version None)
Quarter: 2012Q1

REPORT INFORMATION
  Report Type: 
  Country: None (occurrence: None)
  Receive Date: 20120104
  Receipt Date: 20111101
  Transmission Date: 20120608
  Serious: No
  Sender: FDA-Public Use
  Company Number: 2011HGS-002721

PATIENT
  Age: 60 Year
  Sex: Female
  Weight: 63.5036 kg

DRUGS (9)
  1. PROMETRIUM (PROGESTERONE) (PROGESTERONE) [Concomitant]
  2. TESTOSTERONE (TESTOSTERONE) (TESTOSTERONE) [Concomitant]
  3. ZOLOFT [Concomitant]
  4. CELLCEPT (MYCOPHENOLATE MOFEITL) (MYCOPHENOLATE MOFETIL) [Concomitant]
  5. BENLYSTA [Suspect]
     Indication: SYSTEMIC LUPUS ERYTHEMATOSUS
     Dosage: 1 IN 28 D, INTRAVENOUS DRIP
     Route: 041
     Dates: start: 20110818
  6. ESTRADIOL [Concomitant]
  7. LEVOTHYRONINE (LEVOTHYRONINE) [Concomitant]
  8. PREDNISONE [Concomitant]
  9. SYNTHROID (LEVOTHYROXINE SODIUM) (LEVOTHYROXINE SODIUM) [Concomitant]

REACTIONS (3)
  - FATIGUE [None]
  - PAIN IN EXTREMITY [None]
  - INSOMNIA [None]
